FAERS Safety Report 5095065-0 (Version None)
Quarter: 2006Q3

REPORT INFORMATION
  Report Type: 
  Country: None (occurrence: None)
  Receive Date: 20060731
  Receipt Date: 20060417
  Transmission Date: 20061208
  Serious: No
  Sender: FDA-Public Use
  Company Number: 2006PV012218

PATIENT
  Age: 59 Year
  Sex: Male
  Weight: 145.151 kg

DRUGS (3)
  1. BYETTA [Suspect]
     Indication: DIABETES MELLITUS NON-INSULIN-DEPENDENT
     Dosage: 5 MCG;SC
     Route: 058
     Dates: start: 20051201
  2. HUMALOG [Concomitant]
  3. NOVOLIN N [Concomitant]

REACTIONS (1)
  - WEIGHT DECREASED [None]
